FAERS Safety Report 25132462 (Version 1)
Quarter: 2025Q1

REPORT INFORMATION
  Report Type: Spontaneous
  Country: US (occurrence: US)
  Receive Date: 20250328
  Receipt Date: 20250328
  Transmission Date: 20250408
  Serious: No
  Sender: AUROBINDO
  Company Number: US-AUROBINDO-AUR-APL-2024-018290

PATIENT
  Age: 81 Year
  Sex: Male
  Weight: 97.9 kg

DRUGS (4)
  1. CELECOXIB [Suspect]
     Active Substance: CELECOXIB
     Indication: Arthritis
     Route: 048
     Dates: start: 20240301
  2. COLCHICINE [Concomitant]
     Active Substance: COLCHICINE
     Indication: Gout
     Route: 065
  3. FINASTERIDE [Concomitant]
     Active Substance: FINASTERIDE
     Indication: Prostatectomy
     Route: 065
  4. TAMSULOSIN [Concomitant]
     Active Substance: TAMSULOSIN
     Indication: Product used for unknown indication
     Route: 065

REACTIONS (6)
  - Rash [Recovering/Resolving]
  - Oedema [Recovering/Resolving]
  - Peripheral swelling [Recovering/Resolving]
  - Lymphadenopathy [Unknown]
  - Lymphoedema [Recovering/Resolving]
  - Cellulitis [Unknown]
